FAERS Safety Report 8451028-6 (Version None)
Quarter: 2012Q2

REPORT INFORMATION
  Report Type: 
  Country: None (occurrence: None)
  Receive Date: 20120614
  Receipt Date: 20120614
  Transmission Date: 20120825
  Serious: Yes (Other)
  Sender: FDA-Public Use
  Company Number: None

PATIENT
  Age: 89 Year
  Sex: Male
  Weight: 56 kg

DRUGS (9)
  1. HEPARIN [Suspect]
     Indication: DEEP VEIN THROMBOSIS
     Dosage: 5000 UNITS Q8H SQ
     Route: 058
     Dates: start: 20120519, end: 20120524
  2. POTASSIUM CHLORIDE [Concomitant]
  3. ASPIRIN [Concomitant]
  4. PLAVIX [Concomitant]
  5. NPH INSULIN [Concomitant]
  6. METOPROLOL TARTRATE [Concomitant]
  7. SIMVASTATIN [Concomitant]
  8. ISOSORBIDE MONONITRATE [Concomitant]
  9. NITROGLYCERIN [Concomitant]

REACTIONS (1)
  - INJECTION SITE HAEMORRHAGE [None]
